FAERS Safety Report 7867249-7 (Version None)
Quarter: 2011Q4

REPORT INFORMATION
  Report Type: 
  Country: None (occurrence: None)
  Receive Date: 20111028
  Receipt Date: 20111025
  Transmission Date: 20120403
  Serious: Yes (Hospitalization)
  Sender: FDA-Public Use
  Company Number: PA-JNJFOC-20110804054

PATIENT
  Age: 36 Year
  Sex: Female
  Weight: 95.4 kg

DRUGS (1)
  1. GOLIMUMAB [Suspect]
     Indication: RHEUMATOID ARTHRITIS
     Route: 058
     Dates: start: 20101021, end: 20110719

REACTIONS (2)
  - MESANGIOPROLIFERATIVE GLOMERULONEPHRITIS [None]
  - HYPERTENSION [None]
